FAERS Safety Report 21554814 (Version 1)
Quarter: 2022Q4

REPORT INFORMATION
  Report Type: Spontaneous
  Country: US (occurrence: US)
  Receive Date: 20221104
  Receipt Date: 20221104
  Transmission Date: 20230113
  Serious: Yes (Other)
  Sender: FDA-Public Use
  Company Number: US-MLMSERVICE-20221018-3866230-4

PATIENT
  Age: 65 Year
  Sex: Female

DRUGS (1)
  1. METHOTREXATE [Suspect]
     Active Substance: METHOTREXATE
     Indication: Product used for unknown indication
     Dosage: 5 MG MTX DAILY INSTEAD OF 25 MG WEEKLY

REACTIONS (19)
  - Diarrhoea [Recovering/Resolving]
  - Neutrophil count abnormal [Recovering/Resolving]
  - Hypotension [Recovering/Resolving]
  - Pyrexia [Recovering/Resolving]
  - Dysphagia [Recovering/Resolving]
  - Inappropriate schedule of product administration [Unknown]
  - Rash [Recovering/Resolving]
  - Vomiting [Recovering/Resolving]
  - Alanine aminotransferase abnormal [Recovering/Resolving]
  - Decreased appetite [Recovering/Resolving]
  - Lymphocyte count abnormal [Recovering/Resolving]
  - Nausea [Recovering/Resolving]
  - Toxicity to various agents [Unknown]
  - Blood bilirubin abnormal [Recovering/Resolving]
  - Tachycardia [Recovering/Resolving]
  - Aspartate aminotransferase abnormal [Recovering/Resolving]
  - Platelet count abnormal [Recovering/Resolving]
  - Haemoglobin abnormal [Recovering/Resolving]
  - Dehydration [Recovering/Resolving]
